FAERS Safety Report 13363275 (Version 2)
Quarter: 2017Q1

REPORT INFORMATION
  Report Type: Spontaneous
  Country: IN (occurrence: IN)
  Receive Date: 20170323
  Receipt Date: 20170328
  Transmission Date: 20170429
  Serious: Yes (Other)
  Sender: FDA-Public Use
  Company Number: IN-TORRENT-00000998

PATIENT
  Age: 52 Year
  Sex: Male
  Weight: 60 kg

DRUGS (8)
  1. ATRACURIUM [Concomitant]
     Active Substance: ATRACURIUM
  2. NITROUS OXIDE. [Concomitant]
     Active Substance: NITROUS OXIDE
  3. THIOPENTONE SODIUM [Concomitant]
     Active Substance: THIOPENTAL SODIUM
  4. GLYCOPYRROLATE. [Concomitant]
     Active Substance: GLYCOPYRROLATE
  5. OXYGEN. [Concomitant]
     Active Substance: OXYGEN
  6. ISOFLURANE. [Concomitant]
     Active Substance: ISOFLURANE
  7. FENTANYL. [Concomitant]
     Active Substance: FENTANYL
  8. AMLODIPINE [Suspect]
     Active Substance: AMLODIPINE BESYLATE

REACTIONS (1)
  - Procedural hypotension [Recovered/Resolved]
